FAERS Safety Report 26023602 (Version 1)
Quarter: 2025Q4

REPORT INFORMATION
  Report Type: Spontaneous
  Country: GB (occurrence: GB)
  Receive Date: 20251111
  Receipt Date: 20251111
  Transmission Date: 20260117
  Serious: Yes (Hospitalization, Disabling, Other)
  Sender: HIKMA
  Company Number: None

PATIENT
  Sex: Female
  Weight: 57 kg

DRUGS (1)
  1. CIPROFLOXACIN [Suspect]
     Active Substance: CIPROFLOXACIN
     Indication: Infection
     Dosage: 500 MILLIGRAM, TWICE A DAY
     Route: 065
     Dates: start: 20251017, end: 20251021

REACTIONS (5)
  - Mobility decreased [Unknown]
  - Condition aggravated [Unknown]
  - Tenderness [Unknown]
  - Anxiety [Not Recovered/Not Resolved]
  - Tendon pain [Not Recovered/Not Resolved]

NARRATIVE: CASE EVENT DATE: 20251020
